FAERS Safety Report 18639392 (Version 1)
Quarter: 2020Q4

REPORT INFORMATION
  Report Type: Report from Study
  Country: US (occurrence: US)
  Receive Date: 20201219
  Receipt Date: 20201219
  Transmission Date: 20210114
  Serious: Yes (Other)
  Sender: FDA-Public Use
  Company Number: US-UCBSA-2020051121

PATIENT
  Age: 58 Year
  Sex: Female

DRUGS (1)
  1. CERTOLIZUMAB PEGOL [Suspect]
     Active Substance: CERTOLIZUMAB PEGOL
     Indication: ANKYLOSING SPONDYLITIS
     Dosage: UNK
     Dates: start: 20200401, end: 202007

REACTIONS (9)
  - Skin exfoliation [Not Recovered/Not Resolved]
  - Feeling hot [Not Recovered/Not Resolved]
  - Psoriasis [Not Recovered/Not Resolved]
  - Product storage error [Unknown]
  - Alopecia [Not Recovered/Not Resolved]
  - Incontinence [Not Recovered/Not Resolved]
  - Pustule [Not Recovered/Not Resolved]
  - Hyperhidrosis [Not Recovered/Not Resolved]
  - Dizziness [Not Recovered/Not Resolved]

NARRATIVE: CASE EVENT DATE: 202006
